FAERS Safety Report 6297589-7 (Version None)
Quarter: 2009Q3

REPORT INFORMATION
  Report Type: 
  Country: None (occurrence: None)
  Receive Date: 20090805
  Receipt Date: 20090724
  Transmission Date: 20100115
  Serious: Yes (Other)
  Sender: FDA-Public Use
  Company Number: PHHY2009NO28942

PATIENT
  Sex: Female

DRUGS (3)
  1. GLEEVEC [Suspect]
     Indication: CHRONIC MYELOID LEUKAEMIA
     Dosage: 400 MG DAILY
     Dates: start: 20081029
  2. GLEEVEC [Suspect]
     Dosage: 300 MGX1
  3. NEUPOGEN [Concomitant]
     Indication: NEUTROPENIA
     Dosage: 300 UG, 1-2 TIMES A WEEK
     Dates: start: 20080619, end: 20090519

REACTIONS (4)
  - EYE DISORDER [None]
  - EYE HAEMORRHAGE [None]
  - NEUTROPENIA [None]
  - THROMBOCYTOPENIA [None]
